FAERS Safety Report 5647149-3 (Version None)
Quarter: 2008Q1

REPORT INFORMATION
  Report Type: 
  Country: None (occurrence: None)
  Receive Date: 20080303
  Receipt Date: 20070522
  Transmission Date: 20080703
  Serious: Yes (Death, Life-Threatening, Hospitalization)
  Sender: FDA-Public Use
  Company Number: NL-MERCK-0703NLD00010

PATIENT
  Age: 52 Year
  Sex: Female

DRUGS (2)
  1. ZETIA [Suspect]
     Indication: HYPERCHOLESTEROLAEMIA
     Route: 048
     Dates: start: 20040501, end: 20050301
  2. ATORVASTATIN CALCIUM [Concomitant]
     Indication: HYPERCHOLESTEROLAEMIA
     Route: 048
     Dates: start: 20030101, end: 20050301

REACTIONS (5)
  - BILIARY FIBROSIS [None]
  - CHOLESTASIS [None]
  - HEPATIC CIRRHOSIS [None]
  - INFECTION [None]
  - VANISHING BILE DUCT SYNDROME [None]
